FAERS Safety Report 18254405 (Version 1)
Quarter: 2020Q3

REPORT INFORMATION
  Report Type: Spontaneous
  Country: FR (occurrence: FR)
  Receive Date: 20200910
  Receipt Date: 20200910
  Transmission Date: 20201103
  Serious: Yes (Hospitalization)
  Sender: FDA-Public Use
  Company Number: FR-MYLANLABS-2020M1076681

PATIENT
  Age: 34 Year
  Sex: Female
  Weight: 51 kg

DRUGS (3)
  1. MORPHINE (CHLORHYDRATE) RENAUDIN [Concomitant]
     Active Substance: MORPHINE HYDROCHLORIDE
     Indication: PAIN
     Dosage: 7.5 MICROGRAM, TOTAL
     Route: 024
     Dates: start: 20200805, end: 20200805
  2. BUPIVACAINE MYLAN [Suspect]
     Active Substance: BUPIVACAINE
     Indication: SPINAL ANAESTHESIA
     Dosage: 10 MILLIGRAM, TOTAL
     Route: 024
     Dates: start: 20200805, end: 20200805
  3. MYLAN SUFENTANIL [Concomitant]
     Active Substance: SUFENTANIL CITRATE
     Indication: PAIN
     Dosage: 5 MICROGRAM, TOTAL
     Route: 024
     Dates: start: 20200805, end: 20200805

REACTIONS (2)
  - Anaesthetic complication [Recovered/Resolved]
  - Drug ineffective [Recovered/Resolved]

NARRATIVE: CASE EVENT DATE: 20200805
